FAERS Safety Report 11199246 (Version 2)
Quarter: 2015Q3

REPORT INFORMATION
  Report Type: Spontaneous
  Country: US (occurrence: US)
  Receive Date: 20150618
  Receipt Date: 20150707
  Transmission Date: 20151125
  Serious: No
  Sender: FDA-Public Use
  Company Number: US-PFIZER INC-2015198745

PATIENT
  Age: 66 Year
  Sex: Female

DRUGS (5)
  1. GLIPIZIDE. [Suspect]
     Active Substance: GLIPIZIDE
     Indication: DIABETES MELLITUS
     Dosage: 10 MG, 2X/DAY
     Dates: start: 20150404
  2. AMLODIPINE [Concomitant]
     Active Substance: AMLODIPINE BESYLATE
     Dosage: 2.5 MG, UNK
  3. ATORVASTATIN [Concomitant]
     Active Substance: ATORVASTATIN
     Dosage: 40 MG, UNK
  4. GLUCOTROL XL [Suspect]
     Active Substance: GLIPIZIDE
     Dosage: UNK
  5. ACARBOSE. [Concomitant]
     Active Substance: ACARBOSE
     Dosage: 25 MG, UNK

REACTIONS (2)
  - Medication residue present [Unknown]
  - Product solubility abnormal [Unknown]
